FAERS Safety Report 9816737 (Version 1)
Quarter: 2014Q1

REPORT INFORMATION
  Report Type: Spontaneous
  Country: US (occurrence: US)
  Receive Date: 20140114
  Receipt Date: 20140114
  Transmission Date: 20141002
  Serious: Yes (Death)
  Sender: FDA-Public Use
  Company Number: US-PFIZER INC-2014007916

PATIENT
  Age: 20 Year
  Sex: Male

DRUGS (6)
  1. DEXTROMETHORPHAN HBR [Suspect]
     Dosage: UNK
  2. SERTRALINE HCL [Suspect]
     Dosage: UNK
  3. METHADONE [Suspect]
     Dosage: UNK
  4. HEROIN [Suspect]
     Dosage: UNK
  5. DOXYLAMINE [Suspect]
     Dosage: UNK
  6. QUININE [Suspect]
     Dosage: UNK

REACTIONS (1)
  - Drug abuse [Fatal]
